FAERS Safety Report 10023535 (Version 3)
Quarter: 2014Q2

REPORT INFORMATION
  Report Type: Spontaneous
  Country: CA (occurrence: CA)
  Receive Date: 20140320
  Receipt Date: 20140430
  Transmission Date: 20141212
  Serious: Yes (Other)
  Sender: FDA-Public Use
  Company Number: CA-AMGEN-CANSP2014018978

PATIENT
  Age: 67 Year
  Sex: Female
  Weight: 53.06 kg

DRUGS (5)
  1. ENBREL [Suspect]
     Indication: RHEUMATOID ARTHRITIS
     Dosage: 25 MG, 2 TIMES/WK
     Route: 058
  2. MORPHINE [Concomitant]
     Dosage: 5 MG, 6-8 TABLETS DAILY
  3. ATIVAN [Concomitant]
     Dosage: UNK
  4. ZOPICLONE [Concomitant]
     Dosage: UNK
  5. ASACOL [Concomitant]
     Indication: COLITIS
     Dosage: 4800 MG, QD
     Route: 048

REACTIONS (10)
  - Colitis [Not Recovered/Not Resolved]
  - Herpes zoster [Recovered/Resolved]
  - Lung infection [Recovered/Resolved]
  - Sleep disorder [Unknown]
  - Gastrooesophageal reflux disease [Unknown]
  - Pain [Recovered/Resolved]
  - Local swelling [Unknown]
  - Pain in extremity [Unknown]
  - Musculoskeletal discomfort [Unknown]
  - Back pain [Unknown]
